FAERS Safety Report 22380085 (Version 1)
Quarter: 2023Q2

REPORT INFORMATION
  Report Type: Spontaneous
  Country: FR (occurrence: FR)
  Receive Date: 20230529
  Receipt Date: 20230529
  Transmission Date: 20230721
  Serious: Yes (Hospitalization)
  Sender: FDA-Public Use
  Company Number: None

PATIENT
  Age: 92 Year
  Sex: Female

DRUGS (3)
  1. ELIQUIS [Suspect]
     Active Substance: APIXABAN
     Indication: COVID-19
     Route: 048
     Dates: start: 20230427
  2. LOVENOX [Suspect]
     Active Substance: ENOXAPARIN SODIUM
     Indication: COVID-19
     Dates: start: 20230425, end: 20230425
  3. CALCIPARINE [Suspect]
     Active Substance: HEPARIN CALCIUM
     Indication: COVID-19
     Dates: start: 20230418, end: 20230424

REACTIONS (4)
  - Purpura [Not Recovered/Not Resolved]
  - Eczema [Not Recovered/Not Resolved]
  - Eosinophilia [Not Recovered/Not Resolved]
  - Off label use [Unknown]

NARRATIVE: CASE EVENT DATE: 20230501
